FAERS Safety Report 24806301 (Version 1)
Quarter: 2025Q1

REPORT INFORMATION
  Report Type: Spontaneous
  Country: DE (occurrence: DE)
  Receive Date: 20250103
  Receipt Date: 20250103
  Transmission Date: 20250409
  Serious: Yes (Other)
  Sender: NOVARTIS
  Company Number: DE-002147023-NVSC2024DE247478

PATIENT
  Sex: Female

DRUGS (3)
  1. ENTRESTO [Suspect]
     Active Substance: SACUBITRIL\VALSARTAN
     Indication: Heart failure with preserved ejection fraction
     Dosage: UNK, BID
     Route: 065
  2. ENTRESTO [Suspect]
     Active Substance: SACUBITRIL\VALSARTAN
     Dosage: UNK, QD (24MG/26MG) (ONCE A DAY IN THE EVENING)
     Route: 065
     Dates: start: 202412
  3. VALSARTAN [Suspect]
     Active Substance: VALSARTAN
     Indication: Heart failure with preserved ejection fraction
     Route: 065

REACTIONS (3)
  - Arrhythmia [Not Recovered/Not Resolved]
  - Hypokalaemia [Unknown]
  - Hypotension [Unknown]
